FAERS Safety Report 4730535-3 (Version None)
Quarter: 2005Q3

REPORT INFORMATION
  Report Type: 
  Country: None (occurrence: None)
  Receive Date: 20050725
  Receipt Date: 20050221
  Transmission Date: 20060218
  Serious: No
  Sender: FDA-Public Use
  Company Number: USA050291397

PATIENT
  Age: 47 Year
  Sex: Male
  Weight: 68 kg

DRUGS (4)
  1. STRATTERA [Suspect]
     Indication: ATTENTION DEFICIT/HYPERACTIVITY DISORDER
     Dosage: 80 MG DAY
     Dates: start: 20041101
  2. BUSPAR [Concomitant]
  3. ZYRTEC [Concomitant]
  4. CLARITIN [Concomitant]

REACTIONS (9)
  - BLOOD PRESSURE FLUCTUATION [None]
  - BLOOD PRESSURE INCREASED [None]
  - DRY MOUTH [None]
  - DYSURIA [None]
  - NAUSEA [None]
  - PAIN [None]
  - SEXUAL DYSFUNCTION [None]
  - URINARY INCONTINENCE [None]
  - URINARY RETENTION [None]
